FAERS Safety Report 8930793 (Version 2)
Quarter: 2012Q4

REPORT INFORMATION
  Report Type: 
  Country: US (occurrence: US)
  Receive Date: 20121121
  Receipt Date: 20121212
  Transmission Date: 20130627
  Serious: Yes (Death, Other)
  Sender: FDA-Public Use
  Company Number: US-ASTELLAS-1089689

PATIENT
  Sex: Male

DRUGS (1)
  1. TARCEVA [Suspect]
     Indication: LUNG ADENOCARCINOMA METASTATIC
     Route: 048
     Dates: start: 20090710, end: 200912

REACTIONS (6)
  - Renal failure acute [Unknown]
  - Vomiting [Unknown]
  - Diarrhoea [Unknown]
  - Polyuria [Unknown]
  - Pneumonia [Unknown]
  - Respiratory failure [Fatal]
